FAERS Safety Report 5955506-0 (Version None)
Quarter: 2008Q4

REPORT INFORMATION
  Report Type: 
  Country: None (occurrence: None)
  Receive Date: 20081112
  Receipt Date: 20081027
  Transmission Date: 20090506
  Serious: Yes (Hospitalization)
  Sender: FDA-Public Use
  Company Number: 1000001595

PATIENT
  Age: 83 Year
  Sex: Female

DRUGS (14)
  1. ESCITALOPRAM OXALATE [Suspect]
     Dosage: 20 MG (20 MG, 1 IN 1 D)
  2. VENLAFAXINE HCL [Suspect]
     Dosage: SEE IMAGE
     Dates: start: 20051209, end: 20051215
  3. VENLAFAXINE HCL [Suspect]
     Dosage: SEE IMAGE
     Dates: start: 20051216, end: 20051219
  4. VENLAFAXINE HCL [Suspect]
     Dosage: SEE IMAGE
     Dates: start: 20051220, end: 20051227
  5. REMERGIL [Suspect]
     Dosage: 15 MG (15 MG, 1 IN 1 D)
  6. ZELDOX [Suspect]
     Dosage: 20 MG (20 MG, 1 IN 1 D)
     Dates: start: 20051222
  7. QUILONORM [Concomitant]
  8. NOVODIGAL [Concomitant]
  9. ENALAPRIL MALEATE [Concomitant]
  10. FURORESE [Concomitant]
  11. ARELIX [Concomitant]
  12. KALINOR [Concomitant]
  13. GODAMED [Concomitant]
  14. CREON [Concomitant]

REACTIONS (10)
  - BODY TEMPERATURE DECREASED [None]
  - DEHYDRATION [None]
  - DELIRIUM [None]
  - DISORIENTATION [None]
  - DRUG INTERACTION [None]
  - DRUG LEVEL INCREASED [None]
  - DYSARTHRIA [None]
  - ENURESIS [None]
  - FAECAL INCONTINENCE [None]
  - SOMNOLENCE [None]
